FAERS Safety Report 5654871-1 (Version None)
Quarter: 2008Q1

REPORT INFORMATION
  Report Type: 
  Country: None (occurrence: None)
  Receive Date: 20080307
  Receipt Date: 20070829
  Transmission Date: 20080703
  Serious: No
  Sender: FDA-Public Use
  Company Number: A0671284A

PATIENT
  Age: 62 Year
  Sex: Female

DRUGS (4)
  1. REQUIP [Suspect]
     Indication: PARKINSON'S DISEASE
     Dosage: 3MG SEE DOSAGE TEXT
     Route: 048
     Dates: start: 20070401
  2. ACTIVELLA [Concomitant]
  3. LEXAPRO [Concomitant]
  4. GLUCOSAMINE [Concomitant]

REACTIONS (10)
  - ALOPECIA [None]
  - DYSPNOEA [None]
  - FEELING ABNORMAL [None]
  - LACRIMATION INCREASED [None]
  - MALAISE [None]
  - MENTAL IMPAIRMENT [None]
  - NASAL CONGESTION [None]
  - NAUSEA [None]
  - SOMNOLENCE [None]
  - YAWNING [None]
